FAERS Safety Report 8177205-X (Version None)
Quarter: 2012Q1

REPORT INFORMATION
  Report Type: 
  Country: None (occurrence: None)
  Receive Date: 20120301
  Receipt Date: 20120223
  Transmission Date: 20120608
  Serious: Yes (Other)
  Sender: FDA-Public Use
  Company Number: US-BAYER-2011-080599

PATIENT
  Age: 16 Year
  Sex: Female
  Weight: 70 kg

DRUGS (5)
  1. YAZ [Suspect]
  2. CEPHALEXIN [Concomitant]
     Dosage: 500 MG, UNK
  3. DROSPIRENONE AND ETHINYL ESTRADIOL [Suspect]
  4. PREVACID [Concomitant]
     Dosage: 15 MG, UNK
     Dates: start: 20050711, end: 20060523
  5. YASMIN [Suspect]

REACTIONS (7)
  - GASTRIC DISORDER [None]
  - FEAR [None]
  - INJURY [None]
  - CHOLECYSTITIS ACUTE [None]
  - PAIN [None]
  - GALLBLADDER INJURY [None]
  - BILE DUCT STONE [None]
